FAERS Safety Report 5192477-1 (Version None)
Quarter: 2006Q4

REPORT INFORMATION
  Report Type: 
  Country: None (occurrence: None)
  Receive Date: 20061220
  Receipt Date: 20061204
  Transmission Date: 20070319
  Serious: Yes (Other)
  Sender: FDA-Public Use
  Company Number: TRP_0886_2006

PATIENT
  Age: 52 Year
  Sex: Male
  Weight: 77.1115 kg

DRUGS (7)
  1. RIBASPHERE [Suspect]
     Indication: HEPATITIS C
     Dosage: 800 MG QDAY PO
     Route: 048
     Dates: start: 20060407, end: 20060501
  2. PEGASYS [Suspect]
     Indication: HEPATITIS C
     Dosage: 180 MCG QWK SC
     Route: 058
     Dates: start: 20060407, end: 20060501
  3. RIBASPHERE [Suspect]
     Indication: HEPATITIS C
     Dosage: 800 MG QDAY PO
     Route: 048
     Dates: start: 20060501, end: 20060615
  4. PEGASYS [Suspect]
     Indication: HEPATITIS C
     Dosage: 180 MCG QWK SC
     Route: 058
     Dates: start: 20060501, end: 20060922
  5. DAILY MULTIVITAMIN [Concomitant]
  6. ACIPHEX [Concomitant]
  7. LEVOTHYROXINE SODIUM [Concomitant]

REACTIONS (10)
  - ANGER [None]
  - BLOOD THYROID STIMULATING HORMONE INCREASED [None]
  - CONFUSIONAL STATE [None]
  - COUGH [None]
  - DEPRESSION [None]
  - DIPLOPIA [None]
  - DISORIENTATION [None]
  - FATIGUE [None]
  - MALAISE [None]
  - PRURITUS [None]
